FAERS Safety Report 6975149-X (Version None)
Quarter: 2010Q3

REPORT INFORMATION
  Report Type: 
  Country: None (occurrence: None)
  Receive Date: 20100910
  Receipt Date: 20090209
  Transmission Date: 20110219
  Serious: No
  Sender: FDA-Public Use
  Company Number: US-WYE-H08135509

PATIENT
  Sex: Male

DRUGS (2)
  1. PROTONIX [Suspect]
     Dosage: UNSPECIFIED
     Route: 042
  2. PROTONIX [Suspect]
     Dosage: UNSPECIFIED
     Route: 048

REACTIONS (1)
  - SPUTUM ABNORMAL [None]
